FAERS Safety Report 5198460-4 (Version None)
Quarter: 2006Q4

REPORT INFORMATION
  Report Type: 
  Country: None (occurrence: None)
  Receive Date: 20061229
  Receipt Date: 20061222
  Transmission Date: 20070319
  Serious: Yes (Hospitalization)
  Sender: FDA-Public Use
  Company Number: S06-USA-05408-01

PATIENT
  Age: 89 Year
  Sex: Female

DRUGS (10)
  1. NAMENDA [Suspect]
     Indication: DEMENTIA ALZHEIMER'S TYPE
     Dosage: 15 MG QD PO
     Route: 048
     Dates: start: 20061201, end: 20061216
  2. NAMENDA [Suspect]
     Indication: DEMENTIA ALZHEIMER'S TYPE
     Dosage: 5 MG QD PO
     Route: 048
     Dates: start: 20061101, end: 20061201
  3. ARICEPT [Concomitant]
  4. SANCTURA (TROSPIUM) [Concomitant]
  5. SYNTHROID (LEVOTHYROSINE SODIUM) [Concomitant]
  6. ACTONEL (RISEDERONATE SODIUM) [Concomitant]
  7. IBUPROFEN [Concomitant]
  8. OSCAL (CALCIUM CARBONATE) [Concomitant]
  9. GARLIQUE (SUPPLEMENT) [Concomitant]
  10. ASPIRIN [Concomitant]

REACTIONS (3)
  - DECREASED APPETITE [None]
  - FAECALOMA [None]
  - VOMITING [None]
